FAERS Safety Report 7118564-6 (Version None)
Quarter: 2010Q4

REPORT INFORMATION
  Report Type: 
  Country: None (occurrence: None)
  Receive Date: 20101123
  Receipt Date: 20101117
  Transmission Date: 20110411
  Serious: Yes (Hospitalization)
  Sender: FDA-Public Use
  Company Number: US-BAYER-201023659BCC

PATIENT
  Age: 50 Year
  Sex: Female
  Weight: 107 kg

DRUGS (8)
  1. ASPIRIN [Suspect]
     Indication: MYOCARDIAL INFARCTION
     Dosage: UNKNOWN BOTTLE COUNT
     Route: 048
     Dates: start: 20090704
  2. SINGULAIR [Concomitant]
     Route: 065
  3. ZYRTEC [Concomitant]
     Route: 065
  4. ZINC [Concomitant]
     Route: 065
  5. PLAVIX [Concomitant]
     Dosage: TOOK EVERY DAY
     Route: 065
  6. BETA BLOCKER [Concomitant]
     Indication: EXTRASYSTOLES
     Route: 065
  7. CHOLESTEROL MEDICINE [Concomitant]
     Route: 065
  8. VITAMIN D3 [Concomitant]
     Route: 065

REACTIONS (1)
  - ASTHMA [None]
